FAERS Safety Report 17428063 (Version 1)
Quarter: 2020Q1

REPORT INFORMATION
  Report Type: Spontaneous
  Country: US (occurrence: US)
  Receive Date: 20200218
  Receipt Date: 20200218
  Transmission Date: 20200409
  Serious: No
  Sender: FDA-Public Use
  Company Number: US-ALKERMES INC.-ALK-2020-000604

PATIENT
  Age: 43 Year
  Sex: Male

DRUGS (8)
  1. VIVITROL [Suspect]
     Active Substance: NALTREXONE
     Indication: ALCOHOLISM
     Dosage: 380 MG, QMO
     Route: 030
     Dates: start: 202001
  2. OMEPRAZOLE. [Concomitant]
     Active Substance: OMEPRAZOLE
     Indication: PRODUCT USED FOR UNKNOWN INDICATION
     Dosage: UNK
  3. DICLOFENAC [Concomitant]
     Active Substance: DICLOFENAC
     Indication: PRODUCT USED FOR UNKNOWN INDICATION
     Dosage: UNK
  4. SERTRALINE [Concomitant]
     Active Substance: SERTRALINE HYDROCHLORIDE
     Indication: PRODUCT USED FOR UNKNOWN INDICATION
     Dosage: UNK
  5. VIVITROL [Suspect]
     Active Substance: NALTREXONE
     Dosage: 380 MG, QMO
     Route: 030
  6. OTHER THERAPEUTIC PRODUCTS [Concomitant]
     Active Substance: UNSPECIFIED INGREDIENT
     Indication: SEIZURE
     Dosage: UNK
  7. VIVITROL [Suspect]
     Active Substance: NALTREXONE
     Dosage: 380 MG, QMO
     Route: 030
     Dates: start: 201909
  8. VIVITROL [Suspect]
     Active Substance: NALTREXONE
     Dosage: 380 MG, QMO
     Route: 030
     Dates: start: 2018, end: 2018

REACTIONS (9)
  - Alcoholism [Recovered/Resolved]
  - Injection site mass [Recovered/Resolved]
  - Injection site pain [Recovered/Resolved]
  - Back pain [Not Recovered/Not Resolved]
  - Injection site reaction [Recovered/Resolved]
  - Injection site swelling [Recovered/Resolved]
  - Spinal stenosis [Not Recovered/Not Resolved]
  - Injection site pruritus [Recovered/Resolved]
  - Injection site induration [Recovered/Resolved]

NARRATIVE: CASE EVENT DATE: 2019
